FAERS Safety Report 9172741 (Version 1)
Quarter: 2012Q4

REPORT INFORMATION
  Report Type: Report from Study
  Country: DE (occurrence: DE)
  Receive Date: 20120911
  Receipt Date: 20120911
  Transmission Date: 20130627
  Serious: No
  Sender: FDA-Public Use
  Company Number: PHHY2012DE078707

PATIENT
  Sex: Female
  Weight: 70 kg

DRUGS (7)
  1. AMN107 [Suspect]
     Indication: CHRONIC MYELOID LEUKAEMIA
     Route: 048
  2. BISOPROLOL HEMIFUMARATE [Concomitant]
  3. DYTIDE H [Concomitant]
  4. OMEPRAZOL [Concomitant]
     Dates: start: 20080128
  5. ALPICORT [Concomitant]
     Dates: start: 20080513, end: 20080526
  6. MONO-EMBOLEX [Concomitant]
     Dates: start: 20081020, end: 20081114
  7. MARCUPHEN [Concomitant]
     Dates: start: 20081117

REACTIONS (5)
  - Peripheral artery thrombosis [Unknown]
  - Peripheral artery stenosis [Unknown]
  - Depression [Unknown]
  - Gastrooesophageal reflux disease [Unknown]
  - Thrombophlebitis [Unknown]
